FAERS Safety Report 23206038 (Version 1)
Quarter: 2023Q4

REPORT INFORMATION
  Report Type: Spontaneous
  Country: US (occurrence: US)
  Receive Date: 20231120
  Receipt Date: 20231120
  Transmission Date: 20240109
  Serious: Yes (Other)
  Sender: FDA-Public Use
  Company Number: US-SPECGX-T202302195

PATIENT
  Age: 47 Year
  Sex: Female

DRUGS (22)
  1. NALTREXONE [Suspect]
     Active Substance: NALTREXONE
     Indication: Sjogren^s syndrome
     Dosage: 1.5 MILLIGRAM, QD
     Route: 065
  2. NALTREXONE [Suspect]
     Active Substance: NALTREXONE
     Dosage: 3 MILLIGRAM, QD (TWO WEEKS AFTER STARTING THE MEDICATION)
     Route: 065
  3. NALTREXONE [Suspect]
     Active Substance: NALTREXONE
     Dosage: 3 MILLIGRAM, QD (FOLLOW-UP 16 MONTHS AGO)
     Route: 065
  4. NALTREXONE [Suspect]
     Active Substance: NALTREXONE
     Dosage: 3 MILLIGRAM, QD (FOLLOW-UP 14 MONTHS AGO)
     Route: 065
  5. NALTREXONE [Suspect]
     Active Substance: NALTREXONE
     Dosage: 4.5 MILLIGRAM, QD
     Route: 065
  6. NALTREXONE [Suspect]
     Active Substance: NALTREXONE
     Dosage: 4.5 MILLIGRAM, QD (FOLLOW-UP NINE MONTHS AGO)
     Route: 065
  7. LEXAPRO [Suspect]
     Active Substance: ESCITALOPRAM OXALATE
     Indication: Sjogren^s syndrome
     Dosage: UNK
     Route: 065
  8. LEXAPRO [Suspect]
     Active Substance: ESCITALOPRAM OXALATE
     Indication: Fibromyalgia
  9. RESTASIS [Suspect]
     Active Substance: CYCLOSPORINE
     Indication: Sjogren^s syndrome
     Dosage: UNK
     Route: 065
  10. RESTASIS [Suspect]
     Active Substance: CYCLOSPORINE
     Indication: Fibromyalgia
  11. MELOXICAM [Suspect]
     Active Substance: MELOXICAM
     Indication: Sjogren^s syndrome
     Dosage: 15 MILLIGRAM
     Route: 065
  12. MELOXICAM [Suspect]
     Active Substance: MELOXICAM
     Indication: Fibromyalgia
  13. VITAMIN D3 [Suspect]
     Active Substance: CHOLECALCIFEROL
     Indication: Sjogren^s syndrome
     Dosage: UNK
     Route: 065
  14. VITAMIN D3 [Suspect]
     Active Substance: CHOLECALCIFEROL
     Indication: Fibromyalgia
  15. MAGNESIUM [Suspect]
     Active Substance: MAGNESIUM
     Indication: Sjogren^s syndrome
     Dosage: UNK
     Route: 065
  16. MAGNESIUM [Suspect]
     Active Substance: MAGNESIUM
     Indication: Fibromyalgia
  17. TRAMADOL [Suspect]
     Active Substance: TRAMADOL\TRAMADOL HYDROCHLORIDE
     Indication: Fibromyalgia
     Dosage: 100 MILLIGRAM, TID
     Route: 065
  18. TRAMADOL [Suspect]
     Active Substance: TRAMADOL\TRAMADOL HYDROCHLORIDE
     Indication: Sjogren^s syndrome
  19. SALAGEN [Suspect]
     Active Substance: PILOCARPINE HYDROCHLORIDE
     Indication: Fibromyalgia
     Dosage: 5 MILLIGRAM, PRN (TID)
     Route: 065
  20. SALAGEN [Suspect]
     Active Substance: PILOCARPINE HYDROCHLORIDE
     Indication: Sjogren^s syndrome
  21. HYDROXYCHLOROQUINE SULFATE [Suspect]
     Active Substance: HYDROXYCHLOROQUINE SULFATE
     Indication: Sjogren^s syndrome
     Dosage: 400 MILLIGRAM, QD
     Route: 065
  22. HYDROXYCHLOROQUINE SULFATE [Suspect]
     Active Substance: HYDROXYCHLOROQUINE SULFATE
     Indication: Fibromyalgia

REACTIONS (3)
  - Electrocardiogram QT prolonged [Unknown]
  - Neuralgia [Unknown]
  - Drug effective for unapproved indication [Unknown]
